FAERS Safety Report 23189072 (Version 2)
Quarter: 2023Q4

REPORT INFORMATION
  Report Type: Report from Study
  Country: US (occurrence: US)
  Receive Date: 20231115
  Receipt Date: 20231120
  Transmission Date: 20240110
  Serious: Yes (Hospitalization)
  Sender: FDA-Public Use
  Company Number: US-JNJFOC-20231054692

PATIENT
  Age: 3 Decade
  Sex: Female

DRUGS (3)
  1. SPRAVATO [Suspect]
     Active Substance: ESKETAMINE
     Indication: Depression
     Dosage: 56 MG, 2 TOTAL DOSES
     Dates: start: 20220225, end: 20220316
  2. SPRAVATO [Suspect]
     Active Substance: ESKETAMINE
     Dosage: 70 MG, 12 TOTAL DOSES
     Dates: start: 20220415, end: 20230118
  3. SPRAVATO [Suspect]
     Active Substance: ESKETAMINE
     Dosage: 84 MG, 13 TOTAL DOSES
     Dates: start: 20230201, end: 20230810

REACTIONS (1)
  - Drug ineffective [Unknown]
